FAERS Safety Report 9351226 (Version 4)
Quarter: 2013Q3

REPORT INFORMATION
  Report Type: Spontaneous
  Country: US (occurrence: US)
  Receive Date: 20130617
  Receipt Date: 20130816
  Transmission Date: 20140515
  Serious: Yes (Hospitalization, Other)
  Sender: FDA-Public Use
  Company Number: US-PFIZER INC-2013178762

PATIENT
  Sex: Female

DRUGS (14)
  1. GABAPENTIN [Suspect]
     Indication: DIABETIC NEUROPATHY
     Dosage: 300 MG, 3X/DAY
     Route: 048
     Dates: start: 20091217
  2. LASIX [Concomitant]
     Indication: OEDEMA
     Dosage: UNK
     Dates: start: 2007
  3. SYNTHROID [Concomitant]
     Indication: HYPOTHYROIDISM
     Dosage: UNK
     Dates: start: 201107
  4. AMITRIPTYLINE [Concomitant]
     Indication: DIABETIC NEUROPATHY
     Dosage: UNK
     Dates: start: 201108
  5. CYMBALTA [Concomitant]
     Indication: DEPRESSION
     Dosage: UNK
     Dates: start: 201210
  6. XIFAXAN [Concomitant]
     Indication: HEPATIC CIRRHOSIS
     Dosage: UNK
     Dates: start: 201302
  7. DILTIAZEM [Concomitant]
     Indication: HYPERTENSION
     Dosage: UNK
     Dates: start: 200908
  8. LANTUS [Concomitant]
     Indication: DIABETES MELLITUS
     Dosage: UNK
     Dates: start: 200801
  9. VITAMIN B12 [Concomitant]
     Indication: PERNICIOUS ANAEMIA
     Dosage: UNK
     Dates: start: 201002
  10. VITAMIN B12 [Concomitant]
     Indication: VITAMIN B12 DEFICIENCY
  11. METFORMIN [Concomitant]
     Indication: DIABETES MELLITUS
     Dosage: UNK
     Dates: start: 2007
  12. KCL [Concomitant]
     Indication: BLOOD POTASSIUM DECREASED
     Dosage: UNK
     Dates: start: 2008
  13. HUMALOG [Concomitant]
     Indication: DIABETES MELLITUS
     Dosage: UNK
     Dates: start: 201203
  14. OMEPRAZOLE [Concomitant]
     Indication: GASTROOESOPHAGEAL REFLUX DISEASE
     Dosage: UNK
     Dates: start: 201012

REACTIONS (13)
  - Pneumonia [Unknown]
  - Suicidal ideation [Unknown]
  - Psychotic disorder [Unknown]
  - Head discomfort [Unknown]
  - Limb discomfort [Unknown]
  - Depression [Unknown]
  - Pain [Unknown]
  - Fungal infection [Unknown]
  - Drug screen false positive [Unknown]
  - Asthenia [Unknown]
  - Decreased interest [Unknown]
  - Malaise [Unknown]
  - Drug effect incomplete [Unknown]
